FAERS Safety Report 8161629-0 (Version None)
Quarter: 2012Q1

REPORT INFORMATION
  Report Type: 
  Country: None (occurrence: None)
  Receive Date: 20120224
  Receipt Date: 20120221
  Transmission Date: 20120608
  Serious: Yes (Hospitalization)
  Sender: FDA-Public Use
  Company Number: FR-PFIZER INC-2012044925

PATIENT
  Age: 63 Year
  Sex: Female

DRUGS (13)
  1. PIPERACILLIN AND TAZOBACTAM [Suspect]
     Indication: SEPSIS
     Dosage: 4 G/500 MG 3 DOSAGE FORMS PER DAY
     Route: 042
     Dates: start: 20111006, end: 20111014
  2. PREVISCAN [Concomitant]
  3. LEVOTHYROXINE SODIUM [Concomitant]
  4. CORDARONE [Concomitant]
  5. LANTUS [Concomitant]
  6. NOVORAPID [Concomitant]
  7. AMIKACIN [Concomitant]
     Indication: SEPSIS
     Dosage: UNK
     Dates: start: 20111006, end: 20111008
  8. BISOPROLOL [Concomitant]
  9. EZETIMIBE [Concomitant]
  10. VANCOMYCIN [Concomitant]
     Indication: SEPSIS
     Dosage: UNK
     Dates: start: 20111006, end: 20111008
  11. PERINDOPRIL ERBUMINE [Concomitant]
  12. RABEPRAZOLE SODIUM [Concomitant]
  13. DUPHALAC [Concomitant]

REACTIONS (1)
  - LEUKOCYTOCLASTIC VASCULITIS [None]
